FAERS Safety Report 11173487 (Version 9)
Quarter: 2015Q4

REPORT INFORMATION
  Report Type: Spontaneous
  Country: CA (occurrence: CA)
  Receive Date: 20150609
  Receipt Date: 20151216
  Transmission Date: 20160304
  Serious: Yes (Other)
  Sender: FDA-Public Use
  Company Number: CA-AMGEN-CANSP2015055265

PATIENT
  Age: 73 Year
  Sex: Female

DRUGS (8)
  1. CORTISONE [Concomitant]
     Active Substance: CORTISONE\HYDROCORTISONE
     Dosage: UNK
  2. HUMIRA [Suspect]
     Active Substance: ADALIMUMAB
     Indication: PRODUCT USED FOR UNKNOWN INDICATION
     Dosage: 40 MG, Q2WK
     Route: 065
     Dates: start: 200607, end: 200609
  3. ORENCIA [Suspect]
     Active Substance: ABATACEPT
     Indication: PRODUCT USED FOR UNKNOWN INDICATION
     Dosage: UNK
     Route: 042
     Dates: start: 200801, end: 200803
  4. REMICADE [Suspect]
     Active Substance: INFLIXIMAB
     Indication: PRODUCT USED FOR UNKNOWN INDICATION
     Dosage: UNK
     Route: 065
     Dates: start: 200504, end: 200603
  5. ENBREL [Suspect]
     Active Substance: ETANERCEPT
     Indication: RHEUMATOID ARTHRITIS
     Dosage: 50 MG, QWK
     Route: 065
     Dates: start: 200310, end: 200504
  6. METHOTREXATE [Suspect]
     Active Substance: METHOTREXATE
     Indication: PRODUCT USED FOR UNKNOWN INDICATION
     Dosage: VARIABLE DOSES 10 TO 20 MG
     Route: 065
     Dates: start: 199909, end: 2008
  7. HYDROXYCHLOROQUINE [Suspect]
     Active Substance: HYDROXYCHLOROQUINE
     Indication: PRODUCT USED FOR UNKNOWN INDICATION
     Dosage: 200 MG, DIE
     Route: 065
     Dates: start: 201001
  8. PREDNISONE. [Suspect]
     Active Substance: PREDNISONE
     Indication: PRODUCT USED FOR UNKNOWN INDICATION
     Dosage: 9 MG, DIE
     Route: 065

REACTIONS (13)
  - Headache [Unknown]
  - Fatigue [Unknown]
  - Alopecia [Unknown]
  - Red blood cell sedimentation rate increased [Unknown]
  - Asthenia [Unknown]
  - Diarrhoea [Recovered/Resolved]
  - Depression [Unknown]
  - Abdominal pain upper [Unknown]
  - Drug dependence [Unknown]
  - Fall [Unknown]
  - Rheumatoid arthritis [Unknown]
  - Anxiety [Unknown]
  - Drug ineffective [Unknown]

NARRATIVE: CASE EVENT DATE: 2008
